FAERS Safety Report 14754145 (Version 2)
Quarter: 2018Q2

REPORT INFORMATION
  Report Type: Spontaneous
  Country: CZ (occurrence: CZ)
  Receive Date: 20180412
  Receipt Date: 20180502
  Transmission Date: 20180711
  Serious: Yes (Hospitalization)
  Sender: FDA-Public Use
  Company Number: CZ-BAUSCH-BL-2018-009726

PATIENT
  Sex: Female

DRUGS (13)
  1. METRONIDAZOLE. [Suspect]
     Active Substance: METRONIDAZOLE
     Indication: PNEUMONIA
     Route: 065
  2. METRONIDAZOLE. [Suspect]
     Active Substance: METRONIDAZOLE
     Indication: ABSCESS
  3. GENTAMYCIN [Suspect]
     Active Substance: GENTAMICIN
     Indication: ABSCESS
     Dosage: 240 MG, 1X/DAY
     Route: 065
  4. GENTAMYCIN [Suspect]
     Active Substance: GENTAMICIN
     Indication: SKIN ULCER
     Route: 065
  5. GENTAMYCIN [Suspect]
     Active Substance: GENTAMICIN
     Indication: PNEUMONIA
  6. ZINFORO [Suspect]
     Active Substance: CEFTAROLINE FOSAMIL
     Indication: SEPTIC SHOCK
     Dosage: 600 MG, 2X/DAY
     Route: 065
  7. ZINFORO [Suspect]
     Active Substance: CEFTAROLINE FOSAMIL
     Indication: PNEUMONIA
  8. DIFLUCAN [Concomitant]
     Active Substance: FLUCONAZOLE
     Indication: FUNGAL INFECTION
     Dosage: 800 MG, 2X/DAY
  9. METRONIDAZOLE. [Suspect]
     Active Substance: METRONIDAZOLE
     Indication: SKIN ULCER
     Dosage: 1 G, 2X/DAY
     Route: 065
  10. ZINFORO [Suspect]
     Active Substance: CEFTAROLINE FOSAMIL
     Indication: ABSCESS
  11. ZINFORO [Suspect]
     Active Substance: CEFTAROLINE FOSAMIL
     Indication: MEDIASTINITIS
  12. METRONIDAZOLE. [Suspect]
     Active Substance: METRONIDAZOLE
     Indication: MEDIASTINITIS
  13. ZINFORO [Suspect]
     Active Substance: CEFTAROLINE FOSAMIL
     Indication: SKIN ULCER
     Route: 065

REACTIONS (2)
  - Inflammatory marker increased [Recovered/Resolved]
  - Drug ineffective [Unknown]
